FAERS Safety Report 9686134 (Version 1)
Quarter: 2013Q4

REPORT INFORMATION
  Report Type: Spontaneous
  Country: MY (occurrence: MY)
  Receive Date: 20131113
  Receipt Date: 20131113
  Transmission Date: 20140711
  Serious: Yes (Hospitalization, Other)
  Sender: FDA-Public Use
  Company Number: PHHY2013MY129353

PATIENT
  Age: 64 Year
  Sex: Male

DRUGS (3)
  1. COMTAN [Suspect]
     Indication: PARKINSON^S DISEASE
     Dosage: 5 DF, DAILY
     Route: 048
  2. COMTAN [Suspect]
     Indication: MOTOR DYSFUNCTION
  3. MADOPAR [Concomitant]
     Indication: PARKINSON^S DISEASE
     Dosage: 5 DF, DAILY
     Route: 048

REACTIONS (2)
  - Aggression [Recovering/Resolving]
  - Psychotic disorder [Recovering/Resolving]
